FAERS Safety Report 7987203-4 (Version None)
Quarter: 2011Q4

REPORT INFORMATION
  Report Type: 
  Country: None (occurrence: None)
  Receive Date: 20111216
  Receipt Date: 20111209
  Transmission Date: 20120403
  Serious: Yes (Other)
  Sender: FDA-Public Use
  Company Number: US-PFIZER INC-2011303271

PATIENT
  Age: 50 Year
  Sex: Female

DRUGS (2)
  1. SULFAMETHOXAZOLE AND TRIMETHOPRIM [Suspect]
     Indication: PYREXIA
  2. SULFAMETHOXAZOLE AND TRIMETHOPRIM [Suspect]
     Indication: DIARRHOEA
     Dosage: UNK

REACTIONS (1)
  - ACUTE FEBRILE NEUTROPHILIC DERMATOSIS [None]
